FAERS Safety Report 8398063 (Version 5)
Quarter: 2012Q4

REPORT INFORMATION
  Report Type: 
  Country: US (occurrence: US)
  Receive Date: 20120209
  Receipt Date: 20121210
  Transmission Date: 20130627
  Serious: Yes (Other)
  Sender: FDA-Public Use
  Company Number: US-PFIZER INC-2012032392

PATIENT
  Age: 69 Year
  Sex: Male
  Weight: 58.96 kg

DRUGS (8)
  1. DILANTIN [Suspect]
     Indication: SEIZURES
     Dosage: 100 mg, 3x/day
     Route: 048
     Dates: start: 1956
  2. DILANTIN [Suspect]
     Dosage: UNK
     Route: 048
     Dates: start: 1961
  3. DILANTIN [Suspect]
     Dosage: 100 mg, 3x/day
     Route: 048
     Dates: start: 1956
  4. DILANTIN [Suspect]
     Dosage: 100 mg, 3x/day
     Route: 048
  5. PHENYTOIN SODIUM [Suspect]
     Indication: SEIZURES
     Dosage: 100 mg, UNK
     Route: 048
     Dates: start: 1956
  6. PHENYTOIN SODIUM [Suspect]
     Dosage: UNK
     Dates: start: 1961
  7. PHENOBARBITAL [Suspect]
     Dosage: UNK, 3x/day (1 1/2 grain tid)
     Dates: start: 1956
  8. PHENOBARBITAL [Suspect]
     Dosage: UNK
     Dates: start: 1961

REACTIONS (5)
  - Grand mal convulsion [Unknown]
  - Smoke sensitivity [Unknown]
  - Impaired driving ability [Unknown]
  - Drug ineffective [Unknown]
  - Drug intolerance [Unknown]
